FAERS Safety Report 20033236 (Version 2)
Quarter: 2021Q4

REPORT INFORMATION
  Report Type: Spontaneous
  Country: RO (occurrence: RO)
  Receive Date: 20211104
  Receipt Date: 20211111
  Transmission Date: 20220303
  Serious: Yes (Hospitalization, Other)
  Sender: FDA-Public Use
  Company Number: RO-SA-2021SA250469

PATIENT
  Age: 26 Year
  Sex: Female

DRUGS (2)
  1. LOPINAVIR\RITONAVIR [Suspect]
     Active Substance: LOPINAVIR\RITONAVIR
     Indication: COVID-19 treatment
     Dosage: UNK UNK, BID, 400/100 MG, BID
  2. HYDROXYCHLOROQUINE [Suspect]
     Active Substance: HYDROXYCHLOROQUINE
     Indication: COVID-19 treatment
     Dosage: 400 MILLIGRAM, QD, 400 MG, QD

REACTIONS (2)
  - Dyspepsia [Unknown]
  - Off label use [Unknown]
